FAERS Safety Report 4819600-X (Version None)
Quarter: 2005Q4

REPORT INFORMATION
  Report Type: 
  Country: None (occurrence: None)
  Receive Date: 20051102
  Receipt Date: 20051102
  Transmission Date: 20060501
  Serious: Yes (Hospitalization)
  Sender: FDA-Public Use
  Company Number: None

PATIENT
  Age: 67 Year
  Sex: Male
  Weight: 81.1939 kg

DRUGS (22)
  1. SINGULAIR [Suspect]
     Indication: ASTHMA
     Dosage: 10MG PO QHS   047
     Route: 048
     Dates: start: 20041007, end: 20041206
  2. PREDNISONE [Concomitant]
  3. ADVAIR DISKUS 100/50 [Concomitant]
  4. ALBUTEROL [Concomitant]
  5. ATROVENT [Concomitant]
  6. SINGULAIR [Concomitant]
  7. SINUS RINSE [Concomitant]
  8. MUCINEX [Concomitant]
  9. NEXIUM [Concomitant]
  10. ZANTAC [Concomitant]
  11. ASPIRIN [Concomitant]
  12. COMBIVENT [Concomitant]
  13. IPRATROPIUM BROMIDE/ALBUTEROL SULFATE [Concomitant]
  14. DUONEB [Concomitant]
  15. REGLAN [Concomitant]
  16. MYCELEX [Concomitant]
  17. VICODIN [Concomitant]
  18. GABAPENTIN [Concomitant]
  19. CYCLOPHOSPHAMIDE [Concomitant]
  20. BACTRIM [Concomitant]
  21. FENTANYL [Concomitant]
  22. CALCIUM/VITAMIN D [Concomitant]

REACTIONS (1)
  - ALLERGIC GRANULOMATOUS ANGIITIS [None]
